FAERS Safety Report 23470114 (Version 1)
Quarter: 2024Q1

REPORT INFORMATION
  Report Type: Other
  Country: FR (occurrence: None)
  Receive Date: 20240202
  Receipt Date: 20240202
  Transmission Date: 20240410
  Serious: Yes (Other)
  Sender: FDA-Public Use
  Company Number: FR-ROCHE-3500606

PATIENT

DRUGS (3)
  1. RITUXIMAB [Suspect]
     Active Substance: RITUXIMAB
     Indication: Multiple sclerosis
     Route: 042
  2. RITUXIMAB [Suspect]
     Active Substance: RITUXIMAB
     Dosage: MAINTENANCE DOSE
     Route: 042
  3. OCRELIZUMAB [Suspect]
     Active Substance: OCRELIZUMAB
     Indication: Multiple sclerosis
     Route: 042

REACTIONS (8)
  - COVID-19 [Unknown]
  - Pneumonia [Unknown]
  - Pharyngitis [Unknown]
  - Acute coronary syndrome [Unknown]
  - Urinary tract infection [Unknown]
  - Haemoptysis [Unknown]
  - Mucocutaneous disorder [Unknown]
  - Off label use [Unknown]
